FAERS Safety Report 7512640-1 (Version None)
Quarter: 2011Q2

REPORT INFORMATION
  Report Type: 
  Country: None (occurrence: None)
  Receive Date: 20110531
  Receipt Date: 20110524
  Transmission Date: 20111010
  Serious: Yes (Death)
  Sender: FDA-Public Use
  Company Number: JP-ROCHE-779790

PATIENT
  Age: 72 Year
  Sex: Female

DRUGS (1)
  1. OSELTAMIVIR [Suspect]
     Indication: H1N1 INFLUENZA
     Route: 065

REACTIONS (2)
  - DRUG INEFFECTIVE [None]
  - PATHOGEN RESISTANCE [None]
